FAERS Safety Report 5210781-5 (Version None)
Quarter: 2007Q1

REPORT INFORMATION
  Report Type: 
  Country: None (occurrence: None)
  Receive Date: 20070117
  Receipt Date: 20070105
  Transmission Date: 20070707
  Serious: Yes (Other)
  Sender: FDA-Public Use
  Company Number: US-ELI_LILLY_AND_COMPANY-US200701001116

PATIENT
  Age: 66 Year
  Sex: Male

DRUGS (6)
  1. CYMBALTA [Suspect]
     Indication: PAIN IN EXTREMITY
     Dosage: 60 MG, DAILY (1/D)
     Dates: start: 20060101
  2. CYMBALTA [Suspect]
     Dosage: 60 MG, QOD
  3. CYMBALTA [Suspect]
     Dosage: 60 MG, DAILY (1/D)
  4. NOVOLIN 50/50 [Concomitant]
     Indication: BLOOD GLUCOSE INCREASED
  5. INSULINS AND ANALOGUES, LONG-ACTING [Concomitant]
     Dosage: UNK, AS NEEDED
  6. ANTIHYPERTENSIVES [Concomitant]

REACTIONS (1)
  - BLOOD PRESSURE INCREASED [None]
